FAERS Safety Report 4681130-6 (Version None)
Quarter: 2005Q2

REPORT INFORMATION
  Report Type: 
  Country: None (occurrence: None)
  Receive Date: 20050601
  Receipt Date: 20050518
  Transmission Date: 20051028
  Serious: Yes (Other)
  Sender: FDA-Public Use
  Company Number: US_0505117734

PATIENT
  Age: 71 Year
  Sex: Female

DRUGS (5)
  1. GEMZAR [Suspect]
     Indication: PANCREATIC CARCINOMA
  2. PHENYTOIN [Concomitant]
  3. VITAMINS [Concomitant]
  4. CALCIUM GLUCONATE [Concomitant]
  5. FELODIPINE [Concomitant]

REACTIONS (5)
  - BLISTER [None]
  - DRUG TOXICITY [None]
  - PALMAR ERYTHEMA [None]
  - PNEUMONITIS [None]
  - PYREXIA [None]
